FAERS Safety Report 23720761 (Version 3)
Quarter: 2024Q2

REPORT INFORMATION
  Report Type: Report from Study
  Country: US (occurrence: US)
  Receive Date: 20240409
  Receipt Date: 20240520
  Transmission Date: 20240715
  Serious: Yes (Hospitalization, Disabling)
  Sender: FDA-Public Use
  Company Number: US-ABBVIE-5708449

PATIENT
  Sex: Male

DRUGS (4)
  1. RINVOQ [Suspect]
     Active Substance: UPADACITINIB
     Indication: Colitis ulcerative
     Dosage: END DATE 2024
     Route: 048
     Dates: start: 20240214
  2. FLINTSTONES MULTIVITAMINS WITH IRON [Concomitant]
     Indication: Product used for unknown indication
  3. ACETAMINOPHEN\HYDROCODONE [Concomitant]
     Active Substance: ACETAMINOPHEN\HYDROCODONE
     Indication: Product used for unknown indication
     Route: 065
  4. PREDNISONE [Concomitant]
     Active Substance: PREDNISONE
     Indication: Product used for unknown indication

REACTIONS (12)
  - Colitis ulcerative [Not Recovered/Not Resolved]
  - Nausea [Not Recovered/Not Resolved]
  - Drug ineffective [Unknown]
  - Anaemia [Unknown]
  - Vomiting [Not Recovered/Not Resolved]
  - Anal incontinence [Unknown]
  - Paraesthesia [Unknown]
  - Hypoaesthesia [Unknown]
  - Bladder disorder [Unknown]
  - Balance disorder [Unknown]
  - Back disorder [Unknown]
  - Nervousness [Unknown]

NARRATIVE: CASE EVENT DATE: 20240101
